FAERS Safety Report 18260836 (Version 1)
Quarter: 2020Q3

REPORT INFORMATION
  Report Type: Spontaneous
  Country: DE (occurrence: DE)
  Receive Date: 20200914
  Receipt Date: 20200914
  Transmission Date: 20201103
  Serious: Yes (Other)
  Sender: FDA-Public Use
  Company Number: DE-LUPIN PHARMACEUTICALS INC.-2020-05853

PATIENT
  Age: 37 Year
  Sex: Female

DRUGS (13)
  1. METHYLPREDNISOLONE. [Suspect]
     Active Substance: METHYLPREDNISOLONE
     Indication: FOREIGN BODY REACTION
     Dosage: 1 MILLIGRAM/KILOGRAM, UNK
     Route: 048
  2. HYDROXYCHLOROQUINE [Suspect]
     Active Substance: HYDROXYCHLOROQUINE
     Indication: SYSTEMIC INFLAMMATORY RESPONSE SYNDROME
  3. DIMETHYL FUMARATE [Concomitant]
     Active Substance: DIMETHYL FUMARATE
     Indication: FOREIGN BODY REACTION
     Dosage: 120 MILLIGRAM, QD
     Route: 065
  4. CLINDAMYCIN. [Concomitant]
     Active Substance: CLINDAMYCIN
     Indication: FOREIGN BODY REACTION
     Dosage: 300 MILLIGRAM, BID
     Route: 048
  5. CLINDAMYCIN. [Concomitant]
     Active Substance: CLINDAMYCIN
     Indication: SYSTEMIC INFLAMMATORY RESPONSE SYNDROME
  6. METHYLPREDNISOLONE. [Suspect]
     Active Substance: METHYLPREDNISOLONE
     Dosage: UNK (RESUMED IN THE FORM OF SYSTEMIC THERAPY)
     Route: 065
  7. HYDROXYCHLOROQUINE [Suspect]
     Active Substance: HYDROXYCHLOROQUINE
     Indication: FOREIGN BODY REACTION
     Dosage: 200 MILLIGRAM, QD
     Route: 065
  8. DIMETHYL FUMARATE [Concomitant]
     Active Substance: DIMETHYL FUMARATE
     Indication: SYSTEMIC INFLAMMATORY RESPONSE SYNDROME
  9. CIPROFLOXACIN. [Concomitant]
     Active Substance: CIPROFLOXACIN
     Indication: FOREIGN BODY REACTION
     Dosage: 500 MILLIGRAM, TID
     Route: 048
  10. PREDNISOLONE. [Concomitant]
     Active Substance: PREDNISOLONE
     Indication: FOREIGN BODY REACTION
     Dosage: 5 MILLIGRAM, QD (LOW DOSE)
     Route: 065
  11. PREDNISOLONE. [Concomitant]
     Active Substance: PREDNISOLONE
     Indication: SYSTEMIC INFLAMMATORY RESPONSE SYNDROME
  12. METHYLPREDNISOLONE. [Suspect]
     Active Substance: METHYLPREDNISOLONE
     Indication: SYSTEMIC INFLAMMATORY RESPONSE SYNDROME
     Dosage: UNK (DOSE REDUCTION)
     Route: 065
  13. CIPROFLOXACIN. [Concomitant]
     Active Substance: CIPROFLOXACIN
     Indication: SYSTEMIC INFLAMMATORY RESPONSE SYNDROME

REACTIONS (2)
  - Rebound effect [Unknown]
  - Off label use [Unknown]
